FAERS Safety Report 15173274 (Version 1)
Quarter: 2018Q4

REPORT INFORMATION
  Report Type: Spontaneous
  Country: US (occurrence: US)
  Receive Date: 20180720
  Receipt Date: 20180720
  Transmission Date: 20190204
  Serious: No
  Sender: FDA-Public Use
  Company Number: US-BAUSCH-BL-2018-019588

PATIENT
  Sex: Male
  Weight: 108.96 kg

DRUGS (1)
  1. FLUOROURACIL 5 PERCENT CREAM [Suspect]
     Active Substance: FLUOROURACIL
     Indication: BASAL CELL CARCINOMA
     Dosage: 2 YEARS BEFORE THE DATE OF THIS REPORT
     Route: 061
     Dates: start: 2016

REACTIONS (2)
  - Nausea [Unknown]
  - Headache [Unknown]

NARRATIVE: CASE EVENT DATE: 2016
